FAERS Safety Report 11948413 (Version 1)
Quarter: 2016Q1

REPORT INFORMATION
  Report Type: Spontaneous
  Country: TR (occurrence: TR)
  Receive Date: 20160125
  Receipt Date: 20160125
  Transmission Date: 20160526
  Serious: Yes (Hospitalization)
  Sender: FDA-Public Use
  Company Number: TR-MYLANLABS-2016M1002936

PATIENT

DRUGS (2)
  1. BENZYLPENICILLIN [Suspect]
     Active Substance: PENICILLIN G
     Indication: TONSILLAR DISORDER
     Dosage: 12,00000 U
     Route: 030
  2. EPINEPHRINE. [Suspect]
     Active Substance: EPINEPHRINE
     Indication: CHEST PAIN
     Dosage: 0.5MG
     Route: 042

REACTIONS (2)
  - Kounis syndrome [Recovered/Resolved]
  - Anaphylactic shock [Recovered/Resolved]
